FAERS Safety Report 8628283 (Version 3)
Quarter: 2013Q2

REPORT INFORMATION
  Report Type: Report from Study
  Country: CH (occurrence: CH)
  Receive Date: 20120621
  Receipt Date: 20130620
  Transmission Date: 20140414
  Serious: Yes (Hospitalization, Other)
  Sender: FDA-Public Use
  Company Number: CH-ROCHE-1057147

PATIENT
  Age: 71 Year
  Sex: Female

DRUGS (5)
  1. BEVACIZUMAB [Suspect]
     Indication: BREAST CANCER
     Dosage: LAST DOSE PRIOR TO THE EVENT 22/MAY/2012
     Route: 042
     Dates: start: 20111122
  2. CAPECITABINE [Suspect]
     Indication: BREAST CANCER
     Dosage: LAST DOSE PRIOR TO THE EVENT 04/JUN/2011
     Route: 048
     Dates: start: 20111123
  3. CYCLOPHOSPHAMIDE [Suspect]
     Indication: BREAST CANCER
     Dosage: LAST DOSE PRIOR TO THE EVENT 04/JUN/2011
     Route: 048
     Dates: start: 20111123
  4. LISINOPRIL [Concomitant]
     Indication: HYPERTENSION
     Route: 048
     Dates: start: 20120117
  5. LISINOPRIL [Concomitant]
     Route: 065
     Dates: start: 20120114

REACTIONS (2)
  - Appendicitis [Recovered/Resolved]
  - Renal ischaemia [Recovered/Resolved with Sequelae]
